FAERS Safety Report 24739264 (Version 1)
Quarter: 2024Q4

REPORT INFORMATION
  Report Type: Report from Study
  Country: US (occurrence: US)
  Receive Date: 20241216
  Receipt Date: 20241216
  Transmission Date: 20250115
  Serious: Yes (Hospitalization, Other)
  Sender: BAYER HEALTHCARE PHARMACEUTICALS INC.
  Company Number: US-BAYER-2024A163786

PATIENT
  Age: 66 Year
  Sex: Male

DRUGS (9)
  1. ADEMPAS [Suspect]
     Active Substance: RIOCIGUAT
     Indication: Pulmonary arterial hypertension
     Dosage: UNK
  2. ADEMPAS [Suspect]
     Active Substance: RIOCIGUAT
     Indication: Pulmonary arterial hypertension
     Dosage: 2.5 MG, TID
     Route: 048
     Dates: start: 202410
  3. VELETRI [Suspect]
     Active Substance: EPOPROSTENOL
     Dosage: UNK
  4. VELETRI [Suspect]
     Active Substance: EPOPROSTENOL
     Dosage: UNK
  5. EPOPROSTENOL [Suspect]
     Active Substance: EPOPROSTENOL
  6. TREPROSTINIL [Concomitant]
     Active Substance: TREPROSTINIL
  7. SILDENAFIL CITRATE [Concomitant]
     Active Substance: SILDENAFIL CITRATE
  8. OPSUMIT [Concomitant]
     Active Substance: MACITENTAN
  9. SODIUM CHLORIDE [Concomitant]
     Active Substance: SODIUM CHLORIDE

REACTIONS (6)
  - Hospitalisation [None]
  - Haematochezia [None]
  - Gastrointestinal disorder [Not Recovered/Not Resolved]
  - Gastrointestinal haemorrhage [None]
  - Diarrhoea [None]
  - Dizziness [None]

NARRATIVE: CASE EVENT DATE: 20241113
